FAERS Safety Report 7600610-4 (Version None)
Quarter: 2011Q3

REPORT INFORMATION
  Report Type: 
  Country: None (occurrence: None)
  Receive Date: 20110711
  Receipt Date: 20110707
  Transmission Date: 20111222
  Serious: Yes (Hospitalization, Other)
  Sender: FDA-Public Use
  Company Number: US-PFIZER INC-2011154101

PATIENT
  Sex: Female
  Weight: 95.238 kg

DRUGS (1)
  1. CELEBREX [Suspect]
     Indication: OSTEOARTHRITIS
     Dosage: 200 MG, 2X/DAY
     Route: 048
     Dates: start: 19990101

REACTIONS (4)
  - CYST [None]
  - SURGERY [None]
  - HAEMORRHAGIC CYST [None]
  - INJECTION SITE HAEMORRHAGE [None]
